FAERS Safety Report 9322359 (Version 2)
Quarter: 2014Q2

REPORT INFORMATION
  Report Type: Spontaneous
  Country: CA (occurrence: CA)
  Receive Date: 20130531
  Receipt Date: 20140515
  Transmission Date: 20141212
  Serious: Yes (Death, Hospitalization, Other)
  Sender: FDA-Public Use
  Company Number: CA-BRISTOL-MYERS SQUIBB COMPANY-18804195

PATIENT
  Age: 39 Year
  Sex: Female

DRUGS (1)
  1. SPRYCEL [Suspect]
     Indication: ACUTE LYMPHOCYTIC LEUKAEMIA
     Route: 048
     Dates: start: 20120515

REACTIONS (3)
  - Graft versus host disease [Fatal]
  - Adverse event [Unknown]
  - Stem cell transplant [Unknown]
